FAERS Safety Report 20415775 (Version 3)
Quarter: 2022Q2

REPORT INFORMATION
  Report Type: Report from Study
  Country: US (occurrence: US)
  Receive Date: 20220202
  Receipt Date: 20220421
  Transmission Date: 20220721
  Serious: No
  Sender: FDA-Public Use
  Company Number: US-NOVARTISTESTPH-NVSC2022US022660

PATIENT
  Sex: Female

DRUGS (1)
  1. ENTRESTO [Suspect]
     Active Substance: SACUBITRIL\VALSARTAN
     Indication: Product used for unknown indication
     Dosage: 0.5 DOSAGE FORM, BID (24/26MG 1/2 TAB IN AM AND 1/2 TAB IN PM)
     Route: 048

REACTIONS (7)
  - Sinusitis [Unknown]
  - Viral infection [Unknown]
  - Chest pain [Unknown]
  - Illness [Unknown]
  - Cough [Unknown]
  - Hypotension [Unknown]
  - Wrong technique in product usage process [Unknown]
